FAERS Safety Report 22247167 (Version 1)
Quarter: 2023Q2

REPORT INFORMATION
  Report Type: Spontaneous
  Country: CA (occurrence: None)
  Receive Date: 20230424
  Receipt Date: 20230424
  Transmission Date: 20230721
  Serious: Yes (Hospitalization)
  Sender: FDA-Public Use
  Company Number: CA-ROCHE-3335481

PATIENT
  Age: 65 Year
  Sex: Male

DRUGS (2)
  1. BEVACIZUMAB [Suspect]
     Active Substance: BEVACIZUMAB
     Indication: Glaucoma
     Route: 065
  2. ACETAZOLAMIDE [Concomitant]
     Active Substance: ACETAZOLAMIDE
     Indication: Glaucoma
     Route: 065

REACTIONS (6)
  - Hyphaema [Recovered/Resolved]
  - Malignant neoplasm progression [Recovered/Resolved]
  - Metastases to liver [Recovered/Resolved]
  - Metastases to lung [Recovered/Resolved]
  - Off label use [Unknown]
  - Uveal melanoma [Recovered/Resolved]
